FAERS Safety Report 5326097-2 (Version None)
Quarter: 2007Q2

REPORT INFORMATION
  Report Type: 
  Country: None (occurrence: None)
  Receive Date: 20070516
  Receipt Date: 20070509
  Transmission Date: 20071010
  Serious: Yes (Other)
  Sender: FDA-Public Use
  Company Number: GB-JNJFOC-20070502875

PATIENT
  Age: 16 Year
  Sex: Male
  Weight: 80 kg

DRUGS (3)
  1. RISPERIDONE [Suspect]
     Indication: AFFECTIVE DISORDER
     Route: 048
  2. CONCERTA [Concomitant]
     Indication: ATTENTION DEFICIT/HYPERACTIVITY DISORDER
     Route: 048
  3. RITALIN [Concomitant]
     Indication: DRUG USE FOR UNKNOWN INDICATION
     Route: 048

REACTIONS (3)
  - DYSKINESIA [None]
  - TIC [None]
  - WEIGHT INCREASED [None]
